FAERS Safety Report 14958264 (Version 9)
Quarter: 2025Q1

REPORT INFORMATION
  Report Type: Spontaneous
  Country: ES (occurrence: ES)
  Receive Date: 20180531
  Receipt Date: 20250221
  Transmission Date: 20250409
  Serious: Yes (Other)
  Sender: SAMSUNG BIOEPIS
  Company Number: ES-PFIZER INC-2017532974

PATIENT
  Age: 60 Year
  Sex: Male

DRUGS (16)
  1. INFLIXIMAB [Suspect]
     Active Substance: INFLIXIMAB
     Indication: Inflammatory bowel disease
     Route: 042
  2. INFLIXIMAB [Suspect]
     Active Substance: INFLIXIMAB
     Indication: Immunodeficiency common variable
  3. INFLIXIMAB [Suspect]
     Active Substance: INFLIXIMAB
     Indication: Gastrointestinal fistula
  4. ADALIMUMAB [Suspect]
     Active Substance: ADALIMUMAB
     Indication: Inflammatory bowel disease
     Dosage: 40 MG, WEEKLY (QW)
     Dates: start: 201410
  5. BUDESONIDE [Suspect]
     Active Substance: BUDESONIDE
     Indication: Inflammatory bowel disease
  6. BUDESONIDE [Suspect]
     Active Substance: BUDESONIDE
     Indication: Immunodeficiency common variable
  7. FILGRASTIM [Suspect]
     Active Substance: FILGRASTIM
     Indication: Inflammatory bowel disease
  8. AZATHIOPRINE [Suspect]
     Active Substance: AZATHIOPRINE
     Indication: Inflammatory bowel disease
  9. METHYLPREDNISOLONE SODIUM SUCCINATE [Suspect]
     Active Substance: METHYLPREDNISOLONE SODIUM SUCCINATE
     Indication: Inflammatory bowel disease
  10. MESALAMINE [Suspect]
     Active Substance: MESALAMINE
     Indication: Inflammatory bowel disease
  11. GRANULOCYTE COLONY-STIMULATING FACTOR NOS [Suspect]
     Active Substance: GRANULOCYTE COLONY-STIMULATING FACTOR NOS
     Indication: Inflammatory bowel disease
  12. USTEKINUMAB [Concomitant]
     Active Substance: USTEKINUMAB
     Indication: Immunodeficiency common variable
     Dosage: 90 MG, EV 8 WEEKS
     Route: 058
     Dates: start: 2014
  13. USTEKINUMAB [Concomitant]
     Active Substance: USTEKINUMAB
     Indication: Fistula
     Route: 058
     Dates: start: 2014
  14. USTEKINUMAB [Concomitant]
     Active Substance: USTEKINUMAB
     Indication: Perforation
  15. USTEKINUMAB [Concomitant]
     Active Substance: USTEKINUMAB
     Indication: Small intestinal obstruction
  16. USTEKINUMAB [Concomitant]
     Active Substance: USTEKINUMAB
     Indication: Inflammatory bowel disease

REACTIONS (9)
  - Small intestinal obstruction [Recovered/Resolved]
  - Intestinal perforation [Recovered/Resolved]
  - Periumbilical abscess [Recovered/Resolved]
  - Cytomegalovirus enteritis [Recovered/Resolved]
  - Gastroenteritis clostridial [Recovered/Resolved]
  - Intestinal fistula [Recovered/Resolved]
  - Campylobacter gastroenteritis [Recovered/Resolved]
  - Drug ineffective [Unknown]
  - Off label use [Unknown]

NARRATIVE: CASE EVENT DATE: 20141001
